FAERS Safety Report 6093846-8 (Version None)
Quarter: 2009Q1

REPORT INFORMATION
  Report Type: 
  Country: None (occurrence: None)
  Receive Date: 20090223
  Receipt Date: 20090217
  Transmission Date: 20090719
  Serious: Yes (Life-Threatening, Hospitalization)
  Sender: FDA-Public Use
  Company Number: 2009-191602-NL

PATIENT
  Age: 34 Year
  Sex: Female

DRUGS (1)
  1. CHORIONIC GONADTROPIN [Suspect]
     Dosage: 5000 IU ONCE
     Route: 030
     Dates: start: 20090117

REACTIONS (8)
  - ASCITES [None]
  - CARDIOVASCULAR DISORDER [None]
  - HYDROTHORAX [None]
  - HYPOALBUMINAEMIA [None]
  - HYPOPROTEINAEMIA [None]
  - OEDEMA PERIPHERAL [None]
  - OVARIAN HYPERSTIMULATION SYNDROME [None]
  - RESPIRATORY FAILURE [None]
